FAERS Safety Report 23864898 (Version 1)
Quarter: 2024Q2

REPORT INFORMATION
  Report Type: Spontaneous
  Country: US (occurrence: US)
  Receive Date: 20240516
  Receipt Date: 20240516
  Transmission Date: 20240716
  Serious: No
  Sender: FDA-Public Use
  Company Number: US-SANDOZ-SDZ2024US048692

PATIENT
  Sex: Male

DRUGS (1)
  1. ALBUTEROL SULFATE [Suspect]
     Active Substance: ALBUTEROL SULFATE
     Indication: Dyspnoea
     Dosage: UNK; ABOUT 8 PUFFS A DAY
     Route: 065
     Dates: start: 20240412

REACTIONS (3)
  - Device defective [Unknown]
  - Device delivery system issue [Unknown]
  - Drug dose omission by device [Unknown]
